FAERS Safety Report 6092659-0 (Version None)
Quarter: 2009Q1

REPORT INFORMATION
  Report Type: 
  Country: None (occurrence: None)
  Receive Date: 20090225
  Receipt Date: 20090216
  Transmission Date: 20090719
  Serious: Yes (Disabling, Other)
  Sender: FDA-Public Use
  Company Number: PHEH2007US03377

PATIENT
  Sex: Male
  Weight: 99.773 kg

DRUGS (3)
  1. AREDIA [Suspect]
     Dosage: 30MG
     Route: 042
  2. CALCIUM [Concomitant]
  3. VITAMIN D [Concomitant]

REACTIONS (12)
  - ANXIETY [None]
  - ASTHENIA [None]
  - CONFUSIONAL STATE [None]
  - DECREASED INTEREST [None]
  - DYSPNOEA EXERTIONAL [None]
  - FALL [None]
  - GAIT DISTURBANCE [None]
  - GENERAL PHYSICAL HEALTH DETERIORATION [None]
  - OSTEONECROSIS [None]
  - PAIN [None]
  - RESORPTION BONE INCREASED [None]
  - RIB FRACTURE [None]
